FAERS Safety Report 20401624 (Version 2)
Quarter: 2022Q1

REPORT INFORMATION
  Report Type: Spontaneous
  Country: US (occurrence: US)
  Receive Date: 20220131
  Receipt Date: 20220201
  Transmission Date: 20220423
  Serious: No
  Sender: FDA-Public Use
  Company Number: US-ABBVIE-21K-163-4201592-00

PATIENT
  Age: 27 Year
  Sex: Male
  Weight: 59.020 kg

DRUGS (2)
  1. HUMIRA [Suspect]
     Active Substance: ADALIMUMAB
     Indication: Crohn^s disease
     Route: 058
  2. HUMIRA [Suspect]
     Active Substance: ADALIMUMAB
     Route: 058
     Dates: start: 202109

REACTIONS (4)
  - Drug level decreased [Unknown]
  - Incorrect dose administered [Unknown]
  - Product dispensing error [Unknown]
  - Overdose [Unknown]

NARRATIVE: CASE EVENT DATE: 20210901
